FAERS Safety Report 6217393-5 (Version None)
Quarter: 2009Q2

REPORT INFORMATION
  Report Type: 
  Country: None (occurrence: None)
  Receive Date: 20090608
  Receipt Date: 20080908
  Transmission Date: 20091009
  Serious: No
  Sender: FDA-Public Use
  Company Number: A0746584A

PATIENT
  Age: 65 Year
  Sex: Male

DRUGS (7)
  1. WELLBUTRIN XL [Suspect]
     Dosage: 150MG PER DAY
     Route: 048
     Dates: start: 20080820, end: 20080908
  2. CHANTIX [Concomitant]
  3. PERCODAN-DEMI [Concomitant]
  4. ASCORBIC ACID [Concomitant]
  5. VITAMIN B COMPLEX CAP [Concomitant]
  6. VITAMIN B COMPLEX CAP [Concomitant]
  7. CATS CLAW [Concomitant]

REACTIONS (1)
  - MEMORY IMPAIRMENT [None]
